FAERS Safety Report 7695289 (Version 5)
Quarter: 2013Q1

REPORT INFORMATION
  Report Type: Spontaneous
  Country: US (occurrence: US)
  Receive Date: 20101207
  Receipt Date: 20130322
  Transmission Date: 20140127
  Serious: No
  Sender: FDA-Public Use
  Company Number: US-BIOGENIDEC-2010BI042130

PATIENT
  Age: 37 Year
  Sex: Male

DRUGS (1)
  1. TYSABRI [Suspect]
     Indication: MULTIPLE SCLEROSIS
     Route: 042
     Dates: start: 20100122

REACTIONS (3)
  - Psoriasis [Not Recovered/Not Resolved]
  - Middle insomnia [Not Recovered/Not Resolved]
  - Memory impairment [Not Recovered/Not Resolved]
